FAERS Safety Report 7492954-4 (Version None)
Quarter: 2011Q2

REPORT INFORMATION
  Report Type: 
  Country: None (occurrence: None)
  Receive Date: 20110520
  Receipt Date: 20110510
  Transmission Date: 20111010
  Serious: Yes (Hospitalization)
  Sender: FDA-Public Use
  Company Number: GB-RANBAXY-2011R1-44313

PATIENT
  Age: 53 Year
  Sex: Female

DRUGS (2)
  1. AMPICILLIN SODIUM/SULBACTAM SODIUM [Suspect]
     Indication: PELVIC PAIN
     Dosage: UNK,UNK
     Route: 065
  2. METRONIDAZOLE [Suspect]
     Indication: PELVIC PAIN
     Dosage: UNK,UNK
     Route: 065

REACTIONS (2)
  - TONGUE DISCOLOURATION [None]
  - CANDIDIASIS [None]
